FAERS Safety Report 6119875-3 (Version None)
Quarter: 2009Q1

REPORT INFORMATION
  Report Type: 
  Country: None (occurrence: None)
  Receive Date: 20090316
  Receipt Date: 20090303
  Transmission Date: 20090719
  Serious: Yes (Other)
  Sender: FDA-Public Use
  Company Number: DE-ROCHE-619512

PATIENT
  Sex: Female
  Weight: 62 kg

DRUGS (2)
  1. XELODA [Suspect]
     Route: 048
     Dates: start: 20080820, end: 20090211
  2. BONDRONAT [Concomitant]
     Indication: METASTASES TO BONE
     Route: 048
     Dates: start: 20081204

REACTIONS (3)
  - DIZZINESS [None]
  - DYSMETROPSIA [None]
  - PALMAR-PLANTAR ERYTHRODYSAESTHESIA SYNDROME [None]
